FAERS Safety Report 10486908 (Version 1)
Quarter: 2014Q4

REPORT INFORMATION
  Report Type: Spontaneous
  Country: NL (occurrence: NL)
  Receive Date: 20141001
  Receipt Date: 20141001
  Transmission Date: 20150528
  Serious: Yes (Other)
  Sender: FDA-Public Use
  Company Number: NL-GILEAD-2014-0116615

PATIENT
  Age: 24 Year
  Sex: Male
  Weight: 62 kg

DRUGS (4)
  1. PREZISTA [Suspect]
     Active Substance: DARUNAVIR ETHANOLATE
     Indication: HIV INFECTION
     Dosage: 225 MG, QD
     Route: 065
     Dates: start: 2013, end: 20140801
  2. TRUVADA [Suspect]
     Active Substance: EMTRICITABINE\TENOFOVIR DISOPROXIL FUMARATE
     Indication: HIV INFECTION
     Dosage: 3 DF, QD
     Route: 065
     Dates: start: 2013, end: 20140801
  3. REYATAZ [Suspect]
     Active Substance: ATAZANAVIR SULFATE
     Indication: HIV INFECTION
     Dosage: 450 MG, QD
     Route: 065
     Dates: start: 2013, end: 20140801
  4. NORVIR [Suspect]
     Active Substance: RITONAVIR
     Indication: HIV INFECTION
     Dosage: 300 MG, QD
     Route: 065
     Dates: start: 2013, end: 20140801

REACTIONS (8)
  - Mood altered [Unknown]
  - Hallucination [Not Recovered/Not Resolved]
  - Scrotal disorder [Unknown]
  - Back pain [Not Recovered/Not Resolved]
  - Loss of libido [Unknown]
  - Arthralgia [Not Recovered/Not Resolved]
  - Initial insomnia [Not Recovered/Not Resolved]
  - Fatigue [Not Recovered/Not Resolved]

NARRATIVE: CASE EVENT DATE: 20130501
